FAERS Safety Report 7080036-5 (Version None)
Quarter: 2010Q4

REPORT INFORMATION
  Report Type: 
  Country: None (occurrence: None)
  Receive Date: 20101102
  Receipt Date: 20091130
  Transmission Date: 20110411
  Serious: No
  Sender: FDA-Public Use
  Company Number: US-ABBOTT-09P-163-0611462-00

PATIENT
  Sex: Male
  Weight: 70.37 kg

DRUGS (1)
  1. BIAXIN [Suspect]
     Indication: PRODUCT USED FOR UNKNOWN INDICATION

REACTIONS (2)
  - PRURITUS [None]
  - RASH [None]
